FAERS Safety Report 24573458 (Version 2)
Quarter: 2024Q4

REPORT INFORMATION
  Report Type: Spontaneous
  Country: JP (occurrence: JP)
  Receive Date: 20241102
  Receipt Date: 20241126
  Transmission Date: 20250115
  Serious: Yes (Other)
  Sender: GENMAB
  Company Number: JP-GENMAB-2024-03937

PATIENT
  Age: 79 Year
  Sex: Male

DRUGS (6)
  1. EPKINLY [Suspect]
     Active Substance: EPCORITAMAB-BYSP
     Indication: Diffuse large B-cell lymphoma refractory
     Dosage: 0.16 MILLIGRAM, SINGLE, DAY1
     Route: 065
  2. EPKINLY [Suspect]
     Active Substance: EPCORITAMAB-BYSP
     Dosage: 0.8 MILLIGRAM, SINGLE, DAY8
     Route: 065
  3. EPKINLY [Suspect]
     Active Substance: EPCORITAMAB-BYSP
     Dosage: 48 MILLIGRAM, FROM DAY15, AFTER ONE CYCLE OF TREATMENT, SKIPPED TWO WEEKS AND RESUMED THE SECOND CYC
     Route: 065
  4. DEXAMETHASONE [Suspect]
     Active Substance: DEXAMETHASONE
     Indication: Prophylaxis
     Dosage: 16 MILLIGRAM, 1ST AND 2ND ADMINISTRATION IN CYCLE1(DAY 1, DAY 2 AND DAY 3 OF ADMINISTRATION OF EPKIN
  5. DEXAMETHASONE [Suspect]
     Active Substance: DEXAMETHASONE
     Dosage: 8 MILLIGRAM, 3RD AND 4TH ADMINISTRATION IN CYCLE1(DAY 1, DAY 2 AND DAY 3 OF ADMINISTRATION OF EPKINL
  6. DEXAMETHASONE [Suspect]
     Active Substance: DEXAMETHASONE
     Dosage: 8 MG (ON THE DAY OF THE FIRST TO FOURTH ADMINISTRATION IN CYCLE 2 OF EPKINLY), 4MG (ON DAY2 AND DAY3

REACTIONS (3)
  - Delirium [Recovering/Resolving]
  - Pyrexia [Recovered/Resolved]
  - Pyrexia [Recovered/Resolved]
